FAERS Safety Report 9893113 (Version 2)
Quarter: 2014Q1

REPORT INFORMATION
  Report Type: Report from Study
  Country: US (occurrence: US)
  Receive Date: 20140213
  Receipt Date: 20140319
  Transmission Date: 20141002
  Serious: Yes (Other)
  Sender: FDA-Public Use
  Company Number: US-ALEXION-A201400427

PATIENT
  Sex: 0

DRUGS (3)
  1. SOLIRIS [Suspect]
     Indication: PAROXYSMAL NOCTURNAL HAEMOGLOBINURIA
     Dosage: 900 MG, Q2W
     Route: 042
     Dates: start: 20140113
  2. SOLIRIS [Suspect]
     Indication: OFF LABEL USE
  3. SOLIRIS [Suspect]
     Indication: INCORRECT DOSE ADMINISTERED

REACTIONS (2)
  - Bone marrow transplant [Unknown]
  - Off label use [Not Recovered/Not Resolved]
